FAERS Safety Report 5925328-5 (Version None)
Quarter: 2008Q4

REPORT INFORMATION
  Report Type: 
  Country: None (occurrence: None)
  Receive Date: 20081020
  Receipt Date: 20081020
  Transmission Date: 20090506
  Serious: Yes (Hospitalization)
  Sender: FDA-Public Use
  Company Number: None

PATIENT
  Age: 49 Year
  Sex: Male
  Weight: 66.2252 kg

DRUGS (1)
  1. FLEET PREP KIT FLEET LABORATORIES [Suspect]

REACTIONS (5)
  - BACK PAIN [None]
  - BLOOD POTASSIUM DECREASED [None]
  - CONVULSION [None]
  - HYPONATRAEMIA [None]
  - RHABDOMYOLYSIS [None]
